FAERS Safety Report 25823945 (Version 1)
Quarter: 2025Q3

REPORT INFORMATION
  Report Type: Spontaneous
  Country: US (occurrence: None)
  Receive Date: 20250918
  Receipt Date: 20250918
  Transmission Date: 20251020
  Serious: Yes (Other)
  Sender: FDA-CTU
  Company Number: None

PATIENT
  Age: 35 Year
  Sex: Female

DRUGS (4)
  1. CYANOCOBALAMIN\NALTREXONE\TOPIRAMATE [Suspect]
     Active Substance: CYANOCOBALAMIN\NALTREXONE\TOPIRAMATE
     Indication: Weight decreased
     Dosage: FREQUENCY : DAILY;?
     Route: 048
  2. BUPROPION [Suspect]
     Active Substance: BUPROPION
  3. METFORMIN [Suspect]
     Active Substance: METFORMIN HYDROCHLORIDE
  4. ONDANSETRON [Suspect]
     Active Substance: ONDANSETRON

REACTIONS (4)
  - Nausea [None]
  - Dehydration [None]
  - Therapy cessation [None]
  - Syncope [None]

NARRATIVE: CASE EVENT DATE: 20250728
